FAERS Safety Report 18212618 (Version 1)
Quarter: 2020Q3

REPORT INFORMATION
  Report Type: Spontaneous
  Country: US (occurrence: US)
  Receive Date: 20200828
  Receipt Date: 20200828
  Transmission Date: 20201103
  Serious: No
  Sender: FDA-Public Use
  Company Number: None

PATIENT
  Age: 13 Year
  Sex: Male
  Weight: 45 kg

DRUGS (3)
  1. IRON [Concomitant]
     Active Substance: IRON
  2. LEVETIRACETAM ORAL SOLUTION 100MG/ML [Suspect]
     Active Substance: LEVETIRACETAM
     Indication: EPILEPSY
     Route: 048
     Dates: start: 20181112, end: 20200217
  3. B?6 [Concomitant]

REACTIONS (1)
  - Hallucination [None]

NARRATIVE: CASE EVENT DATE: 20200217
